FAERS Safety Report 6457703-7 (Version None)
Quarter: 2009Q4

REPORT INFORMATION
  Report Type: 
  Country: None (occurrence: None)
  Receive Date: 20091120
  Receipt Date: 20091112
  Transmission Date: 20100525
  Serious: Yes (Other)
  Sender: FDA-Public Use
  Company Number: 2009SP036810

PATIENT
  Age: 40 Year
  Sex: Female
  Weight: 59 kg

DRUGS (9)
  1. CLARITIN-D [Suspect]
     Indication: ASTHMA
     Dosage: PO
     Route: 048
     Dates: start: 20081201, end: 20090801
  2. CLARITIN-D [Suspect]
     Indication: DERMATITIS
     Dosage: PO
     Route: 048
     Dates: start: 20081201, end: 20090801
  3. CLARITIN-D [Suspect]
     Indication: RHINITIS ALLERGIC
     Dosage: PO
     Route: 048
     Dates: start: 20081201, end: 20090801
  4. CLARITIN-D [Suspect]
     Indication: URTICARIA
     Dosage: PO
     Route: 048
     Dates: start: 20081201, end: 20090801
  5. CLARITIN-D [Suspect]
     Indication: ASTHMA
     Dosage: PO
     Route: 048
     Dates: start: 20091110
  6. CLARITIN-D [Suspect]
     Indication: DERMATITIS
     Dosage: PO
     Route: 048
     Dates: start: 20091110
  7. CLARITIN-D [Suspect]
     Indication: RHINITIS ALLERGIC
     Dosage: PO
     Route: 048
     Dates: start: 20091110
  8. CLARITIN-D [Suspect]
     Indication: URTICARIA
     Dosage: PO
     Route: 048
     Dates: start: 20091110
  9. DAFORIN [Concomitant]

REACTIONS (1)
  - ASTHMA [None]
